FAERS Safety Report 6856460-X (Version None)
Quarter: 2010Q3

REPORT INFORMATION
  Report Type: 
  Country: None (occurrence: None)
  Receive Date: 20100719
  Receipt Date: 20100708
  Transmission Date: 20110219
  Serious: Yes (Other)
  Sender: FDA-Public Use
  Company Number: PL-ROCHE-708954

PATIENT
  Sex: Female
  Weight: 56 kg

DRUGS (2)
  1. XELODA [Suspect]
     Indication: COLORECTAL CANCER METASTATIC
     Route: 048
     Dates: start: 20100517, end: 20100523
  2. OXALIPLATIN [Concomitant]
     Indication: COLORECTAL CANCER METASTATIC
     Route: 042

REACTIONS (6)
  - ABDOMINAL RIGIDITY [None]
  - BLISTER [None]
  - DIARRHOEA [None]
  - ERYTHEMA [None]
  - PYREXIA [None]
  - VOMITING [None]
